FAERS Safety Report 23430335 (Version 1)
Quarter: 2024Q1

REPORT INFORMATION
  Report Type: Spontaneous
  Country: US (occurrence: US)
  Receive Date: 20240123
  Receipt Date: 20240123
  Transmission Date: 20240409
  Serious: No
  Sender: FDA-Public Use
  Company Number: US-OPELLA-2024OHG001826

PATIENT
  Sex: Female

DRUGS (1)
  1. ASPERCREME WITH LIDOCAINE NO-MESS APPLICATOR [Suspect]
     Active Substance: LIDOCAINE HYDROCHLORIDE

REACTIONS (2)
  - Application site pain [Unknown]
  - Wrong technique in product usage process [Unknown]
